FAERS Safety Report 14498808 (Version 1)
Quarter: 2018Q1

REPORT INFORMATION
  Report Type: Report from Study
  Country: BR (occurrence: BR)
  Receive Date: 20180207
  Receipt Date: 20180207
  Transmission Date: 20180509
  Serious: Yes (Other)
  Sender: FDA-Public Use
  Company Number: PHHY2017BR038361

PATIENT
  Sex: Female
  Weight: 36 kg

DRUGS (2)
  1. EXJADE [Suspect]
     Active Substance: DEFERASIROX
     Dosage: 1500 MG, UNK
     Route: 065
  2. EXJADE [Suspect]
     Active Substance: DEFERASIROX
     Indication: THALASSAEMIA
     Dosage: IN ONE DAY, SHE USES 3 TABLETS OF 500 MG, AND THE OTHER DAY SHE USES 2 TABLETS OF 500 MG
     Route: 048
     Dates: start: 2014

REACTIONS (7)
  - Diabetes mellitus [Recovering/Resolving]
  - Blood glucose increased [Unknown]
  - Serum ferritin increased [Unknown]
  - Spinal pain [Recovering/Resolving]
  - Arthralgia [Recovering/Resolving]
  - Haemoglobin decreased [Unknown]
  - Leukaemia [Unknown]
